FAERS Safety Report 8244843-5 (Version None)
Quarter: 2012Q1

REPORT INFORMATION
  Report Type: 
  Country: None (occurrence: None)
  Receive Date: 20120329
  Receipt Date: 20110607
  Transmission Date: 20120608
  Serious: No
  Sender: FDA-Public Use
  Company Number: US-MYLANLABS-2011S1011944

PATIENT
  Age: 65 Year
  Sex: Female
  Weight: 83.92 kg

DRUGS (9)
  1. CELEBREX [Concomitant]
     Indication: ARTHRITIS
  2. DIOVAN [Concomitant]
     Indication: BLOOD PRESSURE INCREASED
  3. FENTANYL-100 [Suspect]
     Indication: FIBROMYALGIA
     Dosage: CHANGED Q48H
     Route: 062
  4. KLONOPIN [Concomitant]
     Indication: BREAKTHROUGH PAIN
  5. PERCOCET [Concomitant]
     Indication: BREAKTHROUGH PAIN
  6. ZETIA [Concomitant]
     Indication: BLOOD CHOLESTEROL
  7. ZYPREXA [Concomitant]
     Indication: DEPRESSION
  8. PEXEVA [Concomitant]
     Indication: DEPRESSION
  9. PREVACID [Concomitant]
     Indication: GASTROOESOPHAGEAL REFLUX DISEASE

REACTIONS (1)
  - DRUG SCREEN NEGATIVE [None]
